FAERS Safety Report 19144750 (Version 5)
Quarter: 2022Q1

REPORT INFORMATION
  Report Type: Report from Study
  Country: US (occurrence: US)
  Receive Date: 20210416
  Receipt Date: 20220102
  Transmission Date: 20220423
  Serious: Yes (Hospitalization, Other)
  Sender: FDA-Public Use
  Company Number: US-BIOVITRUM-2021US3541

PATIENT
  Age: 66 Year
  Sex: Female

DRUGS (1)
  1. KINERET [Suspect]
     Active Substance: ANAKINRA
     Indication: Rheumatoid arthritis
     Route: 058
     Dates: start: 20210326

REACTIONS (12)
  - Hip fracture [Unknown]
  - Fall [Unknown]
  - Cellulitis [Unknown]
  - Peripheral swelling [Recovering/Resolving]
  - Pain in extremity [Recovering/Resolving]
  - Sinusitis [Unknown]
  - Cough [Unknown]
  - Musculoskeletal chest pain [Unknown]
  - Injection site pruritus [Unknown]
  - Injection site pain [Unknown]
  - Hypersensitivity [Unknown]
  - Product dose omission issue [Unknown]

NARRATIVE: CASE EVENT DATE: 20210331
